FAERS Safety Report 12531615 (Version 2)
Quarter: 2016Q3

REPORT INFORMATION
  Report Type: Spontaneous
  Country: JP (occurrence: JP)
  Receive Date: 20160706
  Receipt Date: 20160921
  Transmission Date: 20161109
  Serious: Yes (Hospitalization)
  Sender: FDA-Public Use
  Company Number: JP-MYLANLABS-2016M1027484

PATIENT

DRUGS (2)
  1. CETIRIZINE [Suspect]
     Active Substance: CETIRIZINE HYDROCHLORIDE
     Indication: URTICARIA
     Dosage: 5 MG, QD
     Route: 048
  2. OLOPATADINE [Suspect]
     Active Substance: OLOPATADINE
     Indication: URTICARIA
     Dosage: 5 MG, QD
     Route: 048

REACTIONS (4)
  - Urinary tract obstruction [Recovered/Resolved]
  - Dysuria [Recovered/Resolved]
  - Sciatica [Recovered/Resolved with Sequelae]
  - Urinary tract infection [Recovered/Resolved]
